FAERS Safety Report 10398725 (Version 1)
Quarter: 2014Q3

REPORT INFORMATION
  Report Type: Spontaneous
  Country: US (occurrence: US)
  Receive Date: 20140821
  Receipt Date: 20140821
  Transmission Date: 20150326
  Serious: No
  Sender: FDA-Public Use
  Company Number: US-PFIZER INC-2014229433

PATIENT
  Age: 53 Year
  Sex: Female
  Weight: 74.83 kg

DRUGS (1)
  1. ADVIL PM [Suspect]
     Active Substance: DIPHENHYDRAMINE CITRATE\IBUPROFEN
     Indication: TOOTH DISORDER
     Dosage: 200 MG, DAILY
     Route: 048
     Dates: start: 201408, end: 20140814

REACTIONS (3)
  - Foreign body [Unknown]
  - Intentional product misuse [Unknown]
  - Throat irritation [Unknown]

NARRATIVE: CASE EVENT DATE: 201408
